FAERS Safety Report 9494079 (Version 1)
Quarter: 2013Q3

REPORT INFORMATION
  Report Type: Spontaneous
  Country: NZ (occurrence: None)
  Receive Date: 20130827
  Receipt Date: 20130827
  Transmission Date: 20140515
  Serious: Yes (Other)
  Sender: FDA-Public Use
  Company Number: VAL_02689_2013

PATIENT
  Age: 81 Year
  Sex: Male

DRUGS (5)
  1. METOPROLOL [Suspect]
     Indication: PRODUCT USED FOR UNKNOWN INDICATION
     Dosage: DF ORAL
  2. DABIGATRAN [Suspect]
     Indication: PRODUCT USED FOR UNKNOWN INDICATION
     Dosage: (DF ORAL)
  3. BEZAFIBRATE [Concomitant]
  4. CILAZAPRIL [Concomitant]
  5. DOXAZOSIN [Concomitant]

REACTIONS (1)
  - Pemphigus [None]
